FAERS Safety Report 9655546 (Version 3)
Quarter: 2013Q4

REPORT INFORMATION
  Report Type: Report from Study
  Country: DE (occurrence: DE)
  Receive Date: 20131029
  Receipt Date: 20131210
  Transmission Date: 20140711
  Serious: Yes (Other)
  Sender: FDA-Public Use
  Company Number: DE-ROCHE-1290501

PATIENT
  Age: 58 Year
  Sex: Female
  Weight: 59 kg

DRUGS (9)
  1. PERTUZUMAB [Suspect]
     Indication: BREAST CANCER
     Dosage: LOADING DOSE FOR CYCLE 1 ONLY.
     Route: 042
     Dates: start: 20130508
  2. PERTUZUMAB [Suspect]
     Dosage: MAINTENANCE DOSE (AS PER PROTOCOL). ?LAST DOSE PRIOR TO EVENT BEING SERIOUS WAS ON 27/AUG/2013 WHEN
     Route: 042
     Dates: start: 20130529, end: 20130827
  3. TRASTUZUMAB [Suspect]
     Indication: BREAST CANCER
     Dosage: LOADING DOSE, AS PER PROTOCOL
     Route: 042
     Dates: start: 20130508
  4. TRASTUZUMAB [Suspect]
     Dosage: MAINTENANCE DOSE (6MG/KG)?LAST DOSE PRIOR TO EVENT BEING SERIOUS WAS ON 27/AUG/2013 WHEN THERAPY WAS
     Route: 042
     Dates: start: 20130529, end: 20130827
  5. TRASTUZUMAB [Suspect]
     Dosage: THERAPY RESTARTED
     Route: 042
     Dates: start: 20131022
  6. VINORELBINE [Suspect]
     Indication: BREAST CANCER
     Dosage: LAST DOSE PRIOR TO EVENT BEING SERIOUS WAS ON 27/AUG/2013 WHEN THERAPY WAS TEMPORARILY INTERRUPTED.
     Route: 042
     Dates: start: 20130508, end: 20130827
  7. VINORELBINE [Suspect]
     Dosage: THERAPY RESTARTED
     Route: 042
     Dates: start: 20131022
  8. THOMAPYRIN (ACETYLSALICYLIC ACID/CAFFEINE/PARACETAMOL) [Concomitant]
     Route: 065
     Dates: start: 201304
  9. CEFACLOR [Concomitant]
     Route: 065
     Dates: start: 20130723, end: 20130806

REACTIONS (1)
  - Blood creatine phosphokinase increased [Not Recovered/Not Resolved]
